FAERS Safety Report 8056905-6 (Version None)
Quarter: 2012Q1

REPORT INFORMATION
  Report Type: 
  Country: None (occurrence: None)
  Receive Date: 20120119
  Receipt Date: 20120117
  Transmission Date: 20120608
  Serious: Yes (Hospitalization, Other)
  Sender: FDA-Public Use
  Company Number: US-B.I. PHARMACEUTICALS,INC./RIDGEFIELD-2012-BP-00910BP

PATIENT
  Age: 58 Year
  Sex: Male

DRUGS (5)
  1. PRADAXA [Suspect]
     Dosage: 300 MG
     Route: 048
     Dates: start: 20111201
  2. PRADAXA [Suspect]
     Indication: ATRIAL FIBRILLATION
     Dosage: 300 MG
     Route: 048
     Dates: start: 20110301, end: 20111201
  3. DIGOXIN [Concomitant]
  4. DITIAZEM [Concomitant]
     Indication: HEART RATE
  5. PROPAFENONE HYDROCHLORIDE [Concomitant]

REACTIONS (4)
  - DYSPNOEA [None]
  - DEEP VEIN THROMBOSIS [None]
  - EJECTION FRACTION DECREASED [None]
  - PULMONARY EMBOLISM [None]
